FAERS Safety Report 16715926 (Version 10)
Quarter: 2020Q2

REPORT INFORMATION
  Report Type: Spontaneous
  Country: US (occurrence: US)
  Receive Date: 20190819
  Receipt Date: 20200402
  Transmission Date: 20200713
  Serious: Yes (Hospitalization, Other)
  Sender: FDA-Public Use
  Company Number: US-PFIZER INC-2019351022

PATIENT
  Age: 73 Year
  Sex: Female
  Weight: 84.35 kg

DRUGS (3)
  1. CELEBREX [Suspect]
     Active Substance: CELECOXIB
     Indication: ARTHRITIS
  2. CELEBREX [Suspect]
     Active Substance: CELECOXIB
     Indication: INTERVERTEBRAL DISC DEGENERATION
     Dosage: 200 MG, 2X/DAY AM PM
     Dates: start: 1976
  3. PREMARIN [Suspect]
     Active Substance: ESTROGENS, CONJUGATED
     Indication: HOT FLUSH
     Dosage: UNK(2 DAY 2 AT PM)
     Dates: start: 1976

REACTIONS (12)
  - Deafness bilateral [Recovered/Resolved]
  - Headache [Recovered/Resolved]
  - Brain neoplasm malignant [Recovered/Resolved]
  - Malaise [Recovered/Resolved]
  - Nausea [Recovered/Resolved]
  - Influenza [Recovered/Resolved]
  - Product dispensing error [Unknown]
  - Eating disorder [Recovered/Resolved]
  - Gout [Unknown]
  - Hypoacusis [Unknown]
  - Memory impairment [Recovered/Resolved]
  - Mental disorder [Recovered/Resolved]

NARRATIVE: CASE EVENT DATE: 20190812
